FAERS Safety Report 8846934 (Version 2)
Quarter: 2013Q1

REPORT INFORMATION
  Report Type: Spontaneous
  Country: US (occurrence: None)
  Receive Date: 20121016
  Receipt Date: 20121221
  Transmission Date: 20140127
  Serious: Yes (Hospitalization, Other)
  Sender: FDA-Public Use
  Company Number: 2012-003677

PATIENT
  Age: 18 Year
  Sex: Female
  Weight: 56.7 kg

DRUGS (6)
  1. LO LOESTRIN FE [Suspect]
     Indication: OVULATION PAIN
     Route: 048
     Dates: start: 201206, end: 20120831
  2. LO LOESTRIN FE [Suspect]
     Indication: PELVIC PAIN
     Route: 048
     Dates: start: 201206, end: 20120831
  3. OMEPRAZOLE/SODIUM BICARBONATE [Concomitant]
  4. OMEPRAZOLE/SODIUM BICARBONATE (OMEPRAZOLE, SODIUM BICARBONATE) [Concomitant]
  5. LACTASE (TILACTASE) [Concomitant]
  6. AMITRIPTYLINE [Concomitant]

REACTIONS (18)
  - Renal infarct [None]
  - Pain [None]
  - Chills [None]
  - Vomiting [None]
  - Renal cyst [None]
  - Flank pain [None]
  - Costovertebral angle tenderness [None]
  - Abdominal tenderness [None]
  - Nausea [None]
  - Back pain [None]
  - Urine ketone body present [None]
  - Protein urine present [None]
  - Crystal urine [None]
  - Aspartate aminotransferase increased [None]
  - Periportal oedema [None]
  - Pelvic fluid collection [None]
  - Patent ductus arteriosus [None]
  - Antithrombin III decreased [None]
